FAERS Safety Report 14307439 (Version 1)
Quarter: 2017Q4

REPORT INFORMATION
  Report Type: Spontaneous
  Country: US (occurrence: US)
  Receive Date: 20171219
  Receipt Date: 20171219
  Transmission Date: 20180321
  Serious: Yes (Disabling, Other)
  Sender: FDA-Public Use
  Company Number: None

PATIENT
  Sex: Male

DRUGS (1)
  1. REMICADE [Suspect]
     Active Substance: INFLIXIMAB
     Indication: CROHN^S DISEASE
     Dosage: ?          OTHER FREQUENCY:AS PRESCRIBED;?
     Route: 042
     Dates: start: 20170301, end: 20171002

REACTIONS (3)
  - C-reactive protein abnormal [None]
  - Synovial cyst [None]
  - Systemic lupus erythematosus [None]

NARRATIVE: CASE EVENT DATE: 20171219
